FAERS Safety Report 8200246-0 (Version None)
Quarter: 2012Q1

REPORT INFORMATION
  Report Type: 
  Country: None (occurrence: None)
  Receive Date: 20120309
  Receipt Date: 20120309
  Transmission Date: 20120608
  Serious: Yes (Disabling, Other)
  Sender: FDA-Public Use
  Company Number: None

PATIENT
  Sex: Female
  Weight: 68.0396 kg

DRUGS (2)
  1. INCIVEK [Suspect]
     Dosage: 2 TABS 375MG 3X @DAY ORAL 10/29 - 12-13-11
     Route: 048
  2. PEGASYS [Suspect]
     Indication: HEPATITIS C
     Dosage: 180 MCG 1X WK INJECTION 10/29 - 12-13-11

REACTIONS (4)
  - RASH [None]
  - LOCAL SWELLING [None]
  - VISUAL ACUITY REDUCED [None]
  - DIARRHOEA [None]
